FAERS Safety Report 7009832-7 (Version None)
Quarter: 2010Q3

REPORT INFORMATION
  Report Type: 
  Country: None (occurrence: None)
  Receive Date: 20100923
  Receipt Date: 20100914
  Transmission Date: 20110219
  Serious: Yes (Other)
  Sender: FDA-Public Use
  Company Number: FR-AMGEN-QUU439311

PATIENT
  Sex: Female

DRUGS (6)
  1. ENBREL [Suspect]
     Indication: RHEUMATOID ARTHRITIS
     Dosage: UNKNOWN
     Route: 058
  2. XANAX [Concomitant]
     Dosage: UNKNOWN
  3. MOPRAL [Concomitant]
     Dosage: UNKNOWN
     Route: 048
  4. PROPOFAN [Concomitant]
     Dosage: UNKNOWN
  5. CORTANCYL [Concomitant]
     Dosage: UNKNOWN
  6. VOLTAREN [Concomitant]
     Dosage: UNKNOWN

REACTIONS (1)
  - BREAST CANCER [None]
